FAERS Safety Report 15952975 (Version 4)
Quarter: 2019Q4

REPORT INFORMATION
  Report Type: Spontaneous
  Country: US (occurrence: US)
  Receive Date: 20190211
  Receipt Date: 20191120
  Transmission Date: 20200122
  Serious: Yes (Other)
  Sender: FDA-Public Use
  Company Number: US-ASTRAZENECA-2018SF33713

PATIENT
  Age: 688 Month
  Sex: Male

DRUGS (27)
  1. SYNTHROID [Concomitant]
     Active Substance: LEVOTHYROXINE SODIUM
  2. ALPRAZOLAM. [Concomitant]
     Active Substance: ALPRAZOLAM
  3. TEMAZEPAM. [Concomitant]
     Active Substance: TEMAZEPAM
  4. PRAVASTATIN. [Concomitant]
     Active Substance: PRAVASTATIN
  5. OMEPRAZOLE. [Suspect]
     Active Substance: OMEPRAZOLE
     Indication: GASTROOESOPHAGEAL REFLUX DISEASE
     Route: 065
     Dates: start: 20111121, end: 20131129
  6. OMEPRAZOLE. [Suspect]
     Active Substance: OMEPRAZOLE
     Indication: GASTROOESOPHAGEAL REFLUX DISEASE
     Dosage: GENERIC
     Route: 065
  7. LEXAPRO [Concomitant]
     Active Substance: ESCITALOPRAM OXALATE
  8. DIVALPROEX [Concomitant]
     Active Substance: DIVALPROEX SODIUM
  9. LIDOCAINE. [Concomitant]
     Active Substance: LIDOCAINE
  10. FUROSEMIDE. [Concomitant]
     Active Substance: FUROSEMIDE
  11. SERTRALINE [Concomitant]
     Active Substance: SERTRALINE HYDROCHLORIDE
  12. DICLOFENAC [Concomitant]
     Active Substance: DICLOFENAC
  13. ASPIRIN. [Concomitant]
     Active Substance: ASPIRIN
  14. NEXIUM [Suspect]
     Active Substance: ESOMEPRAZOLE MAGNESIUM
     Indication: GASTROOESOPHAGEAL REFLUX DISEASE
     Route: 048
     Dates: start: 20080716, end: 20090929
  15. CLONAZEPAM. [Concomitant]
     Active Substance: CLONAZEPAM
  16. AMOXICILLIN. [Concomitant]
     Active Substance: AMOXICILLIN
  17. SIMVASTATIN. [Concomitant]
     Active Substance: SIMVASTATIN
  18. NEXIUM [Suspect]
     Active Substance: ESOMEPRAZOLE MAGNESIUM
     Indication: GASTROOESOPHAGEAL REFLUX DISEASE
     Route: 048
     Dates: start: 20080716, end: 20091029
  19. GABAPENTIN. [Concomitant]
     Active Substance: GABAPENTIN
  20. METOPROLOL. [Concomitant]
     Active Substance: METOPROLOL
  21. NEXIUM [Suspect]
     Active Substance: ESOMEPRAZOLE MAGNESIUM
     Indication: GASTROOESOPHAGEAL REFLUX DISEASE
     Route: 048
     Dates: start: 200807, end: 200909
  22. PAXIL [Concomitant]
     Active Substance: PAROXETINE HYDROCHLORIDE
  23. NEXIUM [Suspect]
     Active Substance: ESOMEPRAZOLE MAGNESIUM
     Indication: GASTROOESOPHAGEAL REFLUX DISEASE
     Route: 048
     Dates: start: 20080717
  24. CHLORHEXIDINE [Concomitant]
     Active Substance: CHLORHEXIDINE
  25. IBUPROFEN. [Concomitant]
     Active Substance: IBUPROFEN
  26. LEVOTHYROXINE. [Concomitant]
     Active Substance: LEVOTHYROXINE
  27. DIAZEPAM. [Concomitant]
     Active Substance: DIAZEPAM

REACTIONS (4)
  - Chronic kidney disease [Not Recovered/Not Resolved]
  - Renal failure [Unknown]
  - Tubulointerstitial nephritis [Unknown]
  - Renal injury [Unknown]

NARRATIVE: CASE EVENT DATE: 201505
